FAERS Safety Report 8964820 (Version 5)
Quarter: 2013Q3

REPORT INFORMATION
  Report Type: Spontaneous
  Country: US (occurrence: US)
  Receive Date: 20121213
  Receipt Date: 20130830
  Transmission Date: 20140515
  Serious: Yes (Hospitalization, Other)
  Sender: FDA-Public Use
  Company Number: US-009507513-1212USA002254

PATIENT
  Sex: Female
  Weight: 93.42 kg

DRUGS (3)
  1. NUVARING [Suspect]
     Indication: CONTRACEPTION
     Dosage: UNK
     Route: 067
     Dates: start: 20100927
  2. NOVOLOG [Concomitant]
     Dosage: UNK
     Dates: start: 2000
  3. LEVEMIR [Concomitant]

REACTIONS (12)
  - Deep vein thrombosis [Recovering/Resolving]
  - Asthma [Unknown]
  - Pulmonary embolism [Unknown]
  - Arthropathy [Not Recovered/Not Resolved]
  - Pain in extremity [Unknown]
  - Hypochromic anaemia [Not Recovered/Not Resolved]
  - Iron deficiency [Not Recovered/Not Resolved]
  - Sleep apnoea syndrome [Unknown]
  - Local swelling [Unknown]
  - Presyncope [Recovered/Resolved]
  - Post thrombotic syndrome [Unknown]
  - Polymenorrhagia [Unknown]
